FAERS Safety Report 8712834 (Version 4)
Quarter: 2022Q2

REPORT INFORMATION
  Report Type: Spontaneous
  Country: US (occurrence: US)
  Receive Date: 20120808
  Receipt Date: 20220519
  Transmission Date: 20220720
  Serious: Yes (Death, Life-Threatening, Hospitalization, Other)
  Sender: FDA-Public Use
  Company Number: US-SANOFI-AVENTIS-2012SA054888

PATIENT
  Age: 67 Year
  Sex: Male
  Weight: 89 kg

DRUGS (15)
  1. LASIX [Suspect]
     Active Substance: FUROSEMIDE
     Indication: Hypertension
     Dosage: UNK UNK,UNK
     Route: 048
     Dates: start: 20111025, end: 20111105
  2. LEVOTHYROXINE SODIUM [Suspect]
     Active Substance: LEVOTHYROXINE SODIUM
     Indication: Hypothyroidism
     Dosage: 50 UG,QD
     Route: 048
     Dates: end: 20111105
  3. ASPIRIN [Suspect]
     Active Substance: ASPIRIN
     Indication: Prophylaxis
     Dosage: 80 MG, QD
     Route: 048
     Dates: end: 20111105
  4. POTASSIUM CHLORIDE [Suspect]
     Active Substance: POTASSIUM CHLORIDE
     Indication: Nutritional supplementation
     Dosage: 20 MEQ,QD
     Route: 048
     Dates: end: 20111105
  5. LEVOFLOXACIN [Suspect]
     Active Substance: LEVOFLOXACIN
     Dosage: 750 MG/D5W 150 ML EVERY 24 HOURS
     Route: 042
     Dates: start: 20111015, end: 20111018
  6. MEROPENEM [Suspect]
     Active Substance: MEROPENEM
     Dosage: 1 GRAM IN 50 ML
     Route: 065
     Dates: start: 20111015, end: 20111019
  7. EZETIMIBE [Suspect]
     Active Substance: EZETIMIBE
     Indication: Hyperlipidaemia
     Dosage: 10 MG, QD
     Route: 048
     Dates: end: 20111105
  8. SIMVASTATIN [Suspect]
     Active Substance: SIMVASTATIN
     Indication: Hyperlipidaemia
     Dosage: 40 MG, QD
     Route: 048
     Dates: end: 20111105
  9. CARVEDILOL [Suspect]
     Active Substance: CARVEDILOL
     Indication: Hypertension
     Dosage: 3.125 MG, QD
     Route: 048
     Dates: end: 20111010
  10. CRIZOTINIB [Suspect]
     Active Substance: CRIZOTINIB
     Indication: Non-small cell lung cancer
     Dosage: 250 MG, BID
     Route: 048
     Dates: start: 20110603, end: 20111024
  11. VANCOMYCIN HYDROCHLORIDE [Suspect]
     Active Substance: VANCOMYCIN HYDROCHLORIDE
     Dosage: 1750 MG,1X
     Route: 065
     Dates: start: 20111015, end: 20111015
  12. VANCOMYCIN HYDROCHLORIDE [Suspect]
     Active Substance: VANCOMYCIN HYDROCHLORIDE
     Dosage: 1500 MG, BID
     Route: 042
     Dates: start: 20111015, end: 20111016
  13. BENZONATATE [Suspect]
     Active Substance: BENZONATATE
     Indication: Cough
     Dosage: 100 MG, PRN
     Route: 048
     Dates: end: 20111105
  14. FLUZONE [Suspect]
     Active Substance: INFLUENZA A VIRUS A/CALIFORNIA/7/2009 X-179A (H1N1) ANTIGEN (FORMALDEHYDE INACTIVATED)\INFLUENZA A V
     Indication: Immunisation
     Dosage: 1X
     Dates: start: 20111005
  15. INVESTIGATIONAL PRODUCT [Concomitant]
     Active Substance: INVESTIGATIONAL PRODUCT
     Indication: Non-small cell lung cancer
     Dosage: UNK
     Dates: start: 20110603, end: 20111024

REACTIONS (6)
  - Non-small cell lung cancer [Fatal]
  - Disease progression [Fatal]
  - Failure to thrive [Unknown]
  - Constipation [Recovering/Resolving]
  - Ileus [Recovering/Resolving]
  - Orthostatic hypotension [Unknown]

NARRATIVE: CASE EVENT DATE: 20111012
